FAERS Safety Report 19084678 (Version 9)
Quarter: 2021Q4

REPORT INFORMATION
  Report Type: Report from Study
  Country: US (occurrence: US)
  Receive Date: 20210401
  Receipt Date: 20211224
  Transmission Date: 20220303
  Serious: Yes (Hospitalization, Other)
  Sender: FDA-Public Use
  Company Number: US-NOVARTISPH-NVSC2021US073216

PATIENT
  Sex: Female

DRUGS (2)
  1. ADAKVEO [Suspect]
     Active Substance: CRIZANLIZUMAB-TMCA
     Indication: Sickle cell disease
     Dosage: UNK UNK, QMO
     Route: 042
     Dates: start: 20210226
  2. ADAKVEO [Suspect]
     Active Substance: CRIZANLIZUMAB-TMCA
     Dosage: 546.5 MG
     Route: 065
     Dates: start: 20210416

REACTIONS (7)
  - Pain [Unknown]
  - Sickle cell anaemia with crisis [Unknown]
  - Loss of consciousness [Unknown]
  - Paraesthesia [Unknown]
  - Headache [Unknown]
  - Memory impairment [Unknown]
  - Iron overload [Unknown]
